FAERS Safety Report 5235866-9 (Version None)
Quarter: 2007Q1

REPORT INFORMATION
  Report Type: 
  Country: None (occurrence: None)
  Receive Date: 20061208
  Receipt Date: 20060509
  Transmission Date: 20070707
  Serious: Yes (Other)
  Sender: FDA-Public Use
  Company Number: 2006UW09076

PATIENT
  Age: 38 Year
  Sex: Female
  Weight: 72.574 kg

DRUGS (2)
  1. CRESTOR [Suspect]
     Dosage: 20 MG PO
     Route: 048
     Dates: start: 20060101
  2. GLUCOVANCE [Concomitant]

REACTIONS (1)
  - HYPOAESTHESIA ORAL [None]
